FAERS Safety Report 14314440 (Version 4)
Quarter: 2020Q1

REPORT INFORMATION
  Report Type: Spontaneous
  Country: US (occurrence: US)
  Receive Date: 20171221
  Receipt Date: 20200311
  Transmission Date: 20200409
  Serious: No
  Sender: FDA-Public Use
  Company Number: US-INCYTE CORPORATION-2017IN010927

PATIENT

DRUGS (14)
  1. JAKAFI [Suspect]
     Active Substance: RUXOLITINIB
     Dosage: 10MG QAM AND 5MG QPM
     Route: 065
  2. ACYCLOVIR. [Concomitant]
     Active Substance: ACYCLOVIR
     Indication: PRODUCT USED FOR UNKNOWN INDICATION
     Route: 065
  3. TAMSULOSIN [Concomitant]
     Active Substance: TAMSULOSIN
     Indication: PRODUCT USED FOR UNKNOWN INDICATION
     Route: 065
  4. PRAVASTATIN. [Concomitant]
     Active Substance: PRAVASTATIN
     Indication: PRODUCT USED FOR UNKNOWN INDICATION
     Route: 065
  5. MORPHINE [Concomitant]
     Active Substance: MORPHINE
     Indication: ARTHRITIS
     Route: 065
  6. JAKAFI [Suspect]
     Active Substance: RUXOLITINIB
     Indication: MYELOFIBROSIS
     Dosage: 20 MG, BID
     Route: 048
     Dates: start: 20170817
  7. LISINOPRIL. [Concomitant]
     Active Substance: LISINOPRIL
     Indication: PRODUCT USED FOR UNKNOWN INDICATION
     Route: 065
  8. LANTUS [Concomitant]
     Active Substance: INSULIN GLARGINE
     Indication: PRODUCT USED FOR UNKNOWN INDICATION
     Route: 065
  9. GLIMEPIRIDE. [Concomitant]
     Active Substance: GLIMEPIRIDE
     Indication: PRODUCT USED FOR UNKNOWN INDICATION
     Route: 065
  10. STIOLTO RESPIMAT [Concomitant]
     Active Substance: OLODATEROL HYDROCHLORIDE\TIOTROPIUM BROMIDE MONOHYDRATE
     Indication: PRODUCT USED FOR UNKNOWN INDICATION
     Route: 065
  11. JAKAFI [Suspect]
     Active Substance: RUXOLITINIB
     Dosage: 15 MG  AM AND 10 MG PM
     Route: 048
     Dates: start: 20170817
  12. HYDROXYZINE [Concomitant]
     Active Substance: HYDROXYZINE HYDROCHLORIDE
     Indication: PRODUCT USED FOR UNKNOWN INDICATION
     Route: 065
  13. MORPHINE [Concomitant]
     Active Substance: MORPHINE
     Indication: PAIN
  14. ONDANSETRON [Concomitant]
     Active Substance: ONDANSETRON
     Indication: PRODUCT USED FOR UNKNOWN INDICATION
     Dosage: UNK, AS NEEDED
     Route: 065

REACTIONS (2)
  - Influenza [Unknown]
  - Feeling abnormal [Unknown]
